FAERS Safety Report 8379431-3 (Version None)
Quarter: 2012Q2

REPORT INFORMATION
  Report Type: 
  Country: None (occurrence: None)
  Receive Date: 20120523
  Receipt Date: 20120514
  Transmission Date: 20120825
  Serious: Yes (Other)
  Sender: FDA-Public Use
  Company Number: ZA-SANOFI-AVENTIS-2012SA034669

PATIENT
  Age: 36 Year
  Sex: Female

DRUGS (1)
  1. ENOXAPARIN SODIUM [Suspect]
     Route: 058
     Dates: start: 20111101, end: 20120301

REACTIONS (4)
  - INJECTION SITE PAIN [None]
  - ABORTION SPONTANEOUS [None]
  - INJECTION SITE REACTION [None]
  - MATERNAL EXPOSURE DURING PREGNANCY [None]
